FAERS Safety Report 9999310 (Version 1)
Quarter: 2014Q1

REPORT INFORMATION
  Report Type: Spontaneous
  Country: FR (occurrence: FR)
  Receive Date: 20140312
  Receipt Date: 20140312
  Transmission Date: 20141002
  Serious: Yes (Hospitalization)
  Sender: FDA-Public Use
  Company Number: FR-TEVA-467163ISR

PATIENT
  Age: 77 Year
  Sex: Female

DRUGS (3)
  1. VINCRISTINE [Suspect]
     Indication: CENTRAL NERVOUS SYSTEM LYMPHOMA
     Route: 065
  2. METHOTREXATE [Suspect]
     Indication: CENTRAL NERVOUS SYSTEM LYMPHOMA
     Route: 065
  3. LEUCOVORIN [Suspect]
     Indication: CENTRAL NERVOUS SYSTEM LYMPHOMA
     Route: 065

REACTIONS (1)
  - Drug-induced liver injury [Unknown]
